FAERS Safety Report 24258884 (Version 1)
Quarter: 2024Q3

REPORT INFORMATION
  Report Type: Spontaneous
  Country: US (occurrence: US)
  Receive Date: 20240828
  Receipt Date: 20240828
  Transmission Date: 20241016
  Serious: Yes (Other)
  Sender: MERCK
  Company Number: US-009507513-2408USA008072

PATIENT
  Age: 66 Year
  Sex: Female

DRUGS (1)
  1. KEYTRUDA [Suspect]
     Active Substance: PEMBROLIZUMAB
     Indication: Brain neoplasm malignant
     Dosage: 200 MILLIGRAM, Q3W
     Dates: start: 202402

REACTIONS (1)
  - Mycobacterium avium complex infection [Unknown]

NARRATIVE: CASE EVENT DATE: 20240809
